FAERS Safety Report 6692579-4 (Version None)
Quarter: 2010Q2

REPORT INFORMATION
  Report Type: 
  Country: None (occurrence: None)
  Receive Date: 20100422
  Receipt Date: 20100412
  Transmission Date: 20101027
  Serious: Yes (Other)
  Sender: FDA-Public Use
  Company Number: AU-PFIZER INC-2010045395

PATIENT
  Sex: Female

DRUGS (1)
  1. VFEND [Suspect]
     Indication: ASPERGILLOSIS
     Dosage: 320 MG IN THE MORNING AND 240 MG IN THE EVENING
     Route: 042

REACTIONS (2)
  - DRUG LEVEL DECREASED [None]
  - GAMMA-GLUTAMYLTRANSFERASE INCREASED [None]
